FAERS Safety Report 7659993-1 (Version None)
Quarter: 2011Q3

REPORT INFORMATION
  Report Type: 
  Country: None (occurrence: None)
  Receive Date: 20110805
  Receipt Date: 20100301
  Transmission Date: 20111222
  Serious: Yes (Disabling, Other)
  Sender: FDA-Public Use
  Company Number: US-BAYER-200916707NA

PATIENT
  Age: 51 Year
  Sex: Female
  Weight: 54 kg

DRUGS (45)
  1. MAGNEVIST [Suspect]
     Indication: NUCLEAR MAGNETIC RESONANCE IMAGING
     Route: 042
     Dates: start: 20061122, end: 20061122
  2. MAGNEVIST [Suspect]
     Indication: OSTEOMYELITIS
     Dates: start: 20061124, end: 20061124
  3. TOPROL-XL [Concomitant]
  4. CEFEPIME [Concomitant]
  5. ZOFRAN [Concomitant]
  6. ADVAIR DISKUS 100/50 [Concomitant]
     Indication: ASTHMA
  7. HYDROCODONE BITARTRATE AND ACETAMINOPHEN [Concomitant]
  8. MIRALAX [Concomitant]
  9. COLACE [Concomitant]
  10. ZOFRAN [Concomitant]
  11. MULTIHANCE [Suspect]
     Indication: NUCLEAR MAGNETIC RESONANCE IMAGING
  12. OPTIMARK [Suspect]
     Indication: NUCLEAR MAGNETIC RESONANCE IMAGING
  13. RIFAMPIN [Concomitant]
  14. DARVOCET-N 50 [Concomitant]
  15. ACETAMINOPHEN [Concomitant]
  16. PROHANCE [Suspect]
     Indication: NUCLEAR MAGNETIC RESONANCE IMAGING
  17. SENSIPAR [Concomitant]
  18. FERRLECIT [Concomitant]
     Dates: start: 20030901
  19. LOPRESSOR [Concomitant]
  20. BACTROBAN [Concomitant]
  21. TRI-LUMA [Concomitant]
  22. VIOXX [Concomitant]
  23. RENAGEL [Concomitant]
  24. ALBUTEROL SULFATE AUTOHALER [Concomitant]
  25. HYDROCODONE BITARTRATE AND ACETAMINOPHEN [Concomitant]
  26. ZEMPLAR [Concomitant]
  27. FOSRENOL [Concomitant]
     Dates: start: 20060309
  28. MAGNEVIST [Suspect]
     Dates: start: 20061204, end: 20061204
  29. GADOLINIUM IN UNSPECIFIED DRUG [Suspect]
  30. OMNISCAN [Suspect]
     Indication: NUCLEAR MAGNETIC RESONANCE IMAGING
  31. PROTONIX [Concomitant]
     Indication: GASTROOESOPHAGEAL REFLUX DISEASE
  32. EPOGEN [Concomitant]
     Indication: ANAEMIA
     Dates: start: 20030901
  33. DYNACIRC [Concomitant]
  34. PREDNISONE [Concomitant]
  35. XOPENEX [Concomitant]
  36. PROTONIX [Concomitant]
  37. ZYRTEC [Concomitant]
     Indication: MULTIPLE ALLERGIES
  38. METOPROLOL TARTRATE [Concomitant]
  39. DAPTOMYCIN [Concomitant]
  40. VANCOMYCIN [Concomitant]
  41. ELIDEL [Concomitant]
  42. XANAX [Concomitant]
  43. BENICAR [Concomitant]
  44. COUMADIN [Concomitant]
  45. TENEX [Concomitant]

REACTIONS (23)
  - FIBROSIS [None]
  - SKIN INDURATION [None]
  - EMOTIONAL DISTRESS [None]
  - TENDON DISORDER [None]
  - OEDEMA PERIPHERAL [None]
  - SKIN HYPERTROPHY [None]
  - JOINT RANGE OF MOTION DECREASED [None]
  - MUSCLE TIGHTNESS [None]
  - GAIT DISTURBANCE [None]
  - SKIN HYPERPIGMENTATION [None]
  - DRUG ERUPTION [None]
  - ANXIETY [None]
  - HYPERAESTHESIA [None]
  - SKIN LESION [None]
  - PAIN [None]
  - SCAR [None]
  - SKIN DISCOLOURATION [None]
  - SKIN EXFOLIATION [None]
  - SKIN NECROSIS [None]
  - PRURITUS GENERALISED [None]
  - NEPHROGENIC SYSTEMIC FIBROSIS [None]
  - GENERAL PHYSICAL HEALTH DETERIORATION [None]
  - MOBILITY DECREASED [None]
